FAERS Safety Report 20853226 (Version 1)
Quarter: 2022Q2

REPORT INFORMATION
  Report Type: Spontaneous
  Country: JP (occurrence: JP)
  Receive Date: 20220520
  Receipt Date: 20220520
  Transmission Date: 20220721
  Serious: Yes (Hospitalization, Other)
  Sender: FDA-Public Use
  Company Number: JP-ASTRAZENECA-220023164_013120_P_1

PATIENT
  Age: 70 Year
  Sex: Male
  Weight: 68 kg

DRUGS (11)
  1. CARBOPLATIN [Suspect]
     Active Substance: CARBOPLATIN
     Indication: Small cell lung cancer
     Route: 041
     Dates: start: 20211210
  2. CARBOPLATIN [Suspect]
     Active Substance: CARBOPLATIN
     Route: 041
     Dates: end: 20220224
  3. PRAVASTATIN SODIUM [Suspect]
     Active Substance: PRAVASTATIN SODIUM
     Indication: Product used for unknown indication
     Route: 065
     Dates: start: 20120131, end: 20220408
  4. IMFINZI [Suspect]
     Active Substance: DURVALUMAB
     Indication: Small cell lung cancer
     Route: 041
     Dates: start: 20211210, end: 20220324
  5. IMFINZI [Suspect]
     Active Substance: DURVALUMAB
     Dosage: UNK
     Route: 041
     Dates: start: 20220502
  6. PLAVIX [Concomitant]
     Active Substance: CLOPIDOGREL BISULFATE
     Indication: Product used for unknown indication
     Route: 048
     Dates: start: 20150819, end: 20220408
  7. ETOPOSIDE [Concomitant]
     Active Substance: ETOPOSIDE
     Indication: Small cell lung cancer
     Dosage: DAY 1, 2 AND 3 OF EACH CYCLE
     Route: 041
     Dates: start: 20211210
  8. ETOPOSIDE [Concomitant]
     Active Substance: ETOPOSIDE
     Dosage: DAY 1, 2 AND 3 OF EACH CYCLE
     Route: 041
     Dates: end: 20220228
  9. METHYLCOBALAMIN [Concomitant]
     Active Substance: METHYLCOBALAMIN
     Indication: Product used for unknown indication
     Route: 048
     Dates: start: 20141003
  10. GLICLAZIDE [Concomitant]
     Active Substance: GLICLAZIDE
     Indication: Product used for unknown indication
     Route: 048
     Dates: start: 20201105
  11. PRAVASTATIN SODIUM [Concomitant]
     Active Substance: PRAVASTATIN SODIUM
     Indication: Product used for unknown indication
     Route: 048
     Dates: start: 20120131, end: 20220408

REACTIONS (1)
  - Malignant spinal cord compression [Recovering/Resolving]

NARRATIVE: CASE EVENT DATE: 20220407
